FAERS Safety Report 6089071-7 (Version None)
Quarter: 2009Q1

REPORT INFORMATION
  Report Type: 
  Country: None (occurrence: None)
  Receive Date: 20090224
  Receipt Date: 20090219
  Transmission Date: 20090719
  Serious: Yes (Other)
  Sender: FDA-Public Use
  Company Number: B0561337A

PATIENT
  Age: 50 Year
  Sex: Female

DRUGS (3)
  1. WELLBUTRIN [Suspect]
     Indication: DEPRESSION
     Dosage: 150MG PER DAY
     Route: 048
     Dates: start: 20081101
  2. ESCITALOPRAM [Concomitant]
     Route: 065
     Dates: start: 20081101
  3. SERTRALINE [Concomitant]
     Route: 065

REACTIONS (2)
  - NEUTROPENIA [None]
  - RED BLOOD CELL COUNT DECREASED [None]
